FAERS Safety Report 7455018-1 (Version None)
Quarter: 2011Q2

REPORT INFORMATION
  Report Type: 
  Country: None (occurrence: None)
  Receive Date: 20110503
  Receipt Date: 20110427
  Transmission Date: 20111010
  Serious: Yes (Hospitalization)
  Sender: FDA-Public Use
  Company Number: US-PFIZER INC-2011090885

PATIENT
  Sex: Female

DRUGS (4)
  1. GLIPIZIDE [Suspect]
  2. SOLU-MEDROL [Suspect]
     Indication: PNEUMONIA
  3. NOVOLOG [Suspect]
  4. METFORMIN [Suspect]

REACTIONS (2)
  - BLOOD GLUCOSE INCREASED [None]
  - PNEUMONIA [None]
